FAERS Safety Report 13311778 (Version 4)
Quarter: 2017Q3

REPORT INFORMATION
  Report Type: Report from Study
  Country: US (occurrence: US)
  Receive Date: 20170309
  Receipt Date: 20170815
  Transmission Date: 20171127
  Serious: Yes (Other)
  Sender: FDA-Public Use
  Company Number: PHEH2017US006940

PATIENT
  Age: 72 Year
  Sex: Female

DRUGS (1)
  1. GLEEVEC [Suspect]
     Active Substance: IMATINIB MESYLATE
     Indication: PRODUCT USED FOR UNKNOWN INDICATION
     Route: 065

REACTIONS (6)
  - Neoplasm [Recovering/Resolving]
  - Tumour pain [Unknown]
  - Sinusitis [Unknown]
  - Malaise [Unknown]
  - Regurgitation [Unknown]
  - Bronchitis [Unknown]

NARRATIVE: CASE EVENT DATE: 20170410
